FAERS Safety Report 6152890-2 (Version None)
Quarter: 2009Q2

REPORT INFORMATION
  Report Type: 
  Country: None (occurrence: None)
  Receive Date: 20090413
  Receipt Date: 20090402
  Transmission Date: 20091009
  Serious: Yes (Other)
  Sender: FDA-Public Use
  Company Number: PHHY2009BR12613

PATIENT
  Sex: Female
  Weight: 68 kg

DRUGS (7)
  1. ENABLEX [Suspect]
     Indication: URINARY INCONTINENCE
     Dosage: 7.5 MG, QD
     Route: 048
     Dates: start: 20081001
  2. SOMALGIN [Concomitant]
     Dosage: 100 MG, BID
     Route: 048
  3. HYGROTON [Concomitant]
     Indication: BLOOD PRESSURE ABNORMAL
     Dosage: 12.5 MG, QD
     Route: 048
  4. FLUOXETINE [Concomitant]
     Indication: DEPRESSION
     Dosage: 20 MG
     Route: 048
     Dates: start: 20020101
  5. ATENOLOL [Concomitant]
     Indication: BLOOD PRESSURE ABNORMAL
     Dosage: 25 MG, 1 TABLET DAILY AT NIGHT
     Route: 048
  6. SIMVASTATIN [Concomitant]
     Indication: BLOOD CHOLESTEROL INCREASED
     Dosage: 20 MG, 1 CAPSULE AT NIGHT
     Route: 048
  7. KETOCONAZOLE [Concomitant]

REACTIONS (3)
  - LIMB OPERATION [None]
  - NEOPLASM MALIGNANT [None]
  - TACHYCARDIA [None]
